FAERS Safety Report 9343894 (Version 1)
Quarter: 2013Q2

REPORT INFORMATION
  Report Type: Spontaneous
  Country: SN (occurrence: SN)
  Receive Date: 20130612
  Receipt Date: 20130612
  Transmission Date: 20140414
  Serious: Yes (Other)
  Sender: FDA-Public Use
  Company Number: PHHY2013SN059168

PATIENT
  Age: 70 Year
  Sex: Female

DRUGS (12)
  1. ZOMETA [Suspect]
     Indication: METASTASES TO BONE
     Dosage: 4 MG, MONTHLY
     Route: 051
     Dates: start: 20120507
  2. ZOMETA [Suspect]
     Dosage: 4 MG, MONTHLY
     Route: 051
     Dates: start: 20120618
  3. ZOMETA [Suspect]
     Dosage: 4 MG, MONTHLY
     Route: 051
     Dates: start: 20120710
  4. ZOMETA [Suspect]
     Dosage: 4 MG, MONTHLY
     Route: 051
     Dates: start: 20120731
  5. ZOMETA [Suspect]
     Dosage: 4 MG, MONTHLY
     Route: 051
     Dates: start: 20120823
  6. ZOMETA [Suspect]
     Dosage: 4 MG, MONTHLY
     Route: 051
     Dates: start: 20120919
  7. ZOMETA [Suspect]
     Dosage: 4 MG, MONTHLY
     Route: 051
     Dates: start: 20130208
  8. ZOMETA [Suspect]
     Dosage: 4 MG, MONTHLY
     Route: 051
     Dates: start: 20130503
  9. ZOMETA [Suspect]
     Dosage: 4 MG, MONTHLY
     Route: 051
     Dates: start: 20130521
  10. NOLVADEX [Concomitant]
     Dosage: UNK UKN, UNK
  11. KETONAL [Concomitant]
     Dosage: UNK UKN, UNK
  12. NUCLEO C.M.P. [Concomitant]
     Dosage: UNK UKN, UNK

REACTIONS (3)
  - Osteonecrosis of jaw [Unknown]
  - Pain in jaw [Recovered/Resolved]
  - Toothache [Unknown]
